FAERS Safety Report 11753606 (Version 3)
Quarter: 2016Q1

REPORT INFORMATION
  Report Type: Report from Study
  Country: CA (occurrence: CA)
  Receive Date: 20151119
  Receipt Date: 20160217
  Transmission Date: 20160525
  Serious: Yes (Hospitalization, Other)
  Sender: FDA-Public Use
  Company Number: PHHY2015CA146943

PATIENT
  Age: 73 Year
  Sex: Female

DRUGS (2)
  1. SANDOSTATIN LAR DEPOT [Suspect]
     Active Substance: OCTREOTIDE ACETATE
     Indication: ANAEMIA
     Dosage: 20 MG, QMO
     Route: 030
     Dates: start: 20151005
  2. SANDOSTATIN LAR DEPOT [Suspect]
     Active Substance: OCTREOTIDE ACETATE
     Indication: ANGIODYSPLASIA

REACTIONS (4)
  - Product use issue [Unknown]
  - Blood pressure systolic increased [Unknown]
  - Cardiac disorder [Unknown]
  - Hernia [Unknown]

NARRATIVE: CASE EVENT DATE: 20151005
